FAERS Safety Report 8900350 (Version 2)
Quarter: 2012Q4

REPORT INFORMATION
  Report Type: 
  Country: JP (occurrence: JP)
  Receive Date: 20121109
  Receipt Date: 20121123
  Transmission Date: 20130627
  Serious: Yes (Hospitalization, Other)
  Sender: FDA-Public Use
  Company Number: JP-JNJFOC-20121102899

PATIENT
  Age: 3 None
  Sex: Female

DRUGS (2)
  1. TOPINA [Suspect]
     Indication: FRONTAL LOBE EPILEPSY
     Dosage: patient started to take medication in her mid 20^s
     Route: 048
  2. TOPINA [Suspect]
     Indication: FRONTAL LOBE EPILEPSY
     Route: 048

REACTIONS (4)
  - Catatonia [Recovered/Resolved]
  - Restlessness [Unknown]
  - Delusion [Unknown]
  - Hallucination [Unknown]
